FAERS Safety Report 25720731 (Version 3)
Quarter: 2025Q4

REPORT INFORMATION
  Report Type: Spontaneous
  Country: EU (occurrence: EU)
  Receive Date: 20250825
  Receipt Date: 20251008
  Transmission Date: 20260117
  Serious: Yes (Death, Other)
  Sender: MIRUM PHARMACEUTICALS
  Company Number: EU-MIRUM PHARMACEUTICALS, INC.-FR-MIR-25-00566

PATIENT

DRUGS (2)
  1. LIVMARLI [Suspect]
     Active Substance: MARALIXIBAT CHLORIDE
     Indication: Alagille syndrome
     Dosage: 0.45 MILLILITER, QD
     Route: 048
     Dates: start: 2025
  2. LIVMARLI [Suspect]
     Active Substance: MARALIXIBAT CHLORIDE
     Dosage: 0.3 MILLILITER, BID
     Route: 048
     Dates: end: 202505

REACTIONS (3)
  - Escherichia sepsis [Fatal]
  - Limb fracture [Unknown]
  - Agitation [Unknown]

NARRATIVE: CASE EVENT DATE: 20250101
